FAERS Safety Report 18373159 (Version 3)
Quarter: 2020Q4

REPORT INFORMATION
  Report Type: Spontaneous
  Country: IE (occurrence: IE)
  Receive Date: 20201012
  Receipt Date: 20201229
  Transmission Date: 20210114
  Serious: Yes (Other)
  Sender: FDA-Public Use
  Company Number: IE-PFIZER INC-2020388472

PATIENT
  Sex: Female
  Weight: 3.63 kg

DRUGS (2)
  1. SERTRALINE HCL [Suspect]
     Active Substance: SERTRALINE HYDROCHLORIDE
     Dosage: 50 MG (SOLID ORAL DOSE CONTINUED TO TAKE WHILE SHE BREASTFED FIRST THE 8 WEEKS)
     Route: 063
     Dates: start: 20160426
  2. SERTRALINE HCL [Suspect]
     Active Substance: SERTRALINE HYDROCHLORIDE
     Indication: DEPRESSION
     Dosage: 50 MG (SOLID ORAL DOSE TAKEN BY MOTHER TWO WEEKS BEFORE DUE DATE)
     Route: 064
     Dates: start: 20160412, end: 20160426

REACTIONS (5)
  - Tremor neonatal [Recovered/Resolved]
  - Drug withdrawal syndrome neonatal [Recovered/Resolved]
  - Exposure via breast milk [Recovered/Resolved]
  - Maternal exposure during pregnancy [Unknown]
  - Agitation neonatal [Recovered/Resolved]

NARRATIVE: CASE EVENT DATE: 20160412
